FAERS Safety Report 8760230 (Version 1)
Quarter: 2012Q4

REPORT INFORMATION
  Report Type: Spontaneous
  Country: US (occurrence: None)
  Receive Date: 20120828
  Receipt Date: 20120828
  Transmission Date: 20130627
  Serious: Yes (Hospitalization)
  Sender: FDA-Public Use
  Company Number: None

PATIENT
  Age: 68 Year
  Sex: Female
  Weight: 95.26 kg

DRUGS (2)
  1. MOVIPREP [Suspect]
     Indication: COLONOSCOPY
     Dosage: 8 oz glass, every 15 minutes same day
     Dates: start: 20120807
  2. MOVIPREP [Suspect]
     Indication: COLONOSCOPY
     Dosage: 2 liter discontinued next day

REACTIONS (1)
  - Haematochezia [None]
